FAERS Safety Report 8899525 (Version 1)
Quarter: 2012Q4

REPORT INFORMATION
  Report Type: 
  Country: US (occurrence: US)
  Receive Date: 20121108
  Receipt Date: 20121108
  Transmission Date: 20130627
  Serious: No
  Sender: FDA-Public Use
  Company Number: US-AMGEN-USASP2012032357

PATIENT
  Age: 41 Year
  Sex: Female

DRUGS (11)
  1. ENBREL [Suspect]
     Indication: PRODUCT USED FOR UNKNOWN INDICATION
     Dosage: 50 mg, qwk
     Route: 058
     Dates: start: 201204
  2. PROZAC [Concomitant]
     Dosage: 10 mg, UNK
  3. PHENERGAN                          /00033001/ [Concomitant]
     Dosage: 25 mg, UNK
  4. CARAFATE [Concomitant]
  5. PREDNISONE [Concomitant]
     Dosage: 2.5 mg, UNK
  6. IBUPROFEN [Concomitant]
     Dosage: 200 mg, UNK
  7. NEXIUM                             /01479302/ [Concomitant]
     Dosage: 20 mg, UNK
  8. FOLIC ACID [Concomitant]
     Dosage: 1 mg, UNK
  9. ZONEGRAN [Concomitant]
     Dosage: 50 mg, UNK
  10. MULTIVITAMIN                       /00097801/ [Concomitant]
  11. METHOTREXATE [Concomitant]

REACTIONS (1)
  - Herpes virus infection [Unknown]
